FAERS Safety Report 5843668-5 (Version None)
Quarter: 2008Q3

REPORT INFORMATION
  Report Type: 
  Country: None (occurrence: None)
  Receive Date: 20080811
  Receipt Date: 20080728
  Transmission Date: 20090109
  Serious: Yes (Death, Other)
  Sender: FDA-Public Use
  Company Number: PAR_01660_2007

PATIENT
  Age: 67 Year
  Sex: Female

DRUGS (2)
  1. IBUPROFEN [Suspect]
     Indication: DRUG USE FOR UNKNOWN INDICATION
     Dosage: (ORAL)
     Route: 048
  2. ASPIRIN [Suspect]
     Indication: DRUG USE FOR UNKNOWN INDICATION
     Dosage: (DF ORAL)
     Route: 048

REACTIONS (9)
  - CARDIAC ARREST [None]
  - COMA [None]
  - CONFUSIONAL STATE [None]
  - DEAFNESS [None]
  - DRUG TOXICITY [None]
  - FEELING COLD [None]
  - HYPERVENTILATION [None]
  - HYPOTENSION [None]
  - OVERDOSE [None]
